FAERS Safety Report 19995810 (Version 4)
Quarter: 2022Q2

REPORT INFORMATION
  Report Type: Report from Study
  Country: IE (occurrence: IE)
  Receive Date: 20211025
  Receipt Date: 20220419
  Transmission Date: 20220721
  Serious: Yes (Other)
  Sender: FDA-Public Use
  Company Number: IE-MYLANLABS-2021M1072573

PATIENT
  Age: 44 Year
  Sex: Female

DRUGS (1)
  1. GLATIRAMER ACETATE [Suspect]
     Active Substance: GLATIRAMER ACETATE
     Indication: Multiple sclerosis
     Dosage: 40 MILLIGRAM, 3XW
     Route: 058
     Dates: start: 20211008

REACTIONS (10)
  - Injection site erythema [Recovered/Resolved]
  - Injection site pain [Recovering/Resolving]
  - Injection site urticaria [Recovering/Resolving]
  - Injection site pruritus [Recovered/Resolved]
  - Flushing [Recovering/Resolving]
  - Blindness [Recovering/Resolving]
  - SARS-CoV-2 test positive [Recovering/Resolving]
  - Dry throat [Recovered/Resolved]
  - Fatigue [Recovered/Resolved]
  - Injection site swelling [Recovering/Resolving]

NARRATIVE: CASE EVENT DATE: 20211008
